FAERS Safety Report 19062537 (Version 2)
Quarter: 2021Q2

REPORT INFORMATION
  Report Type: Spontaneous
  Country: GB (occurrence: GB)
  Receive Date: 20210326
  Receipt Date: 20210409
  Transmission Date: 20210717
  Serious: Yes (Disabling, Other)
  Sender: FDA-Public Use
  Company Number: GB-SUN PHARMACEUTICAL INDUSTRIES LTD-2021RR-288185

PATIENT
  Age: 5 Year
  Sex: Female
  Weight: 79.83 kg

DRUGS (1)
  1. ATORVASTATIN [Suspect]
     Active Substance: ATORVASTATIN
     Indication: BLOOD CHOLESTEROL INCREASED
     Dosage: 1 MILLIGRAM, UNK
     Route: 048
     Dates: start: 20191111

REACTIONS (5)
  - Myalgia [Not Recovered/Not Resolved]
  - Dyspepsia [Unknown]
  - Musculoskeletal stiffness [Unknown]
  - Flatulence [Unknown]
  - Rash [Unknown]

NARRATIVE: CASE EVENT DATE: 20200111
